FAERS Safety Report 7078725-1 (Version None)
Quarter: 2010Q4

REPORT INFORMATION
  Report Type: 
  Country: None (occurrence: None)
  Receive Date: 20101101
  Receipt Date: 20101101
  Transmission Date: 20110411
  Serious: Yes (Other)
  Sender: FDA-Public Use
  Company Number: None

PATIENT
  Age: 2 Year
  Sex: Male
  Weight: 8.8 kg

DRUGS (1)
  1. CETRIAXONE 650 0004-1963-02 [Suspect]
     Dosage: IV
     Route: 042

REACTIONS (1)
  - RASH [None]
